FAERS Safety Report 26176173 (Version 2)
Quarter: 2025Q4

REPORT INFORMATION
  Report Type: Spontaneous
  Country: EU (occurrence: EU)
  Receive Date: 20251218
  Receipt Date: 20251231
  Transmission Date: 20260118
  Serious: Yes (Other)
  Sender: MYLAN
  Company Number: EU-PFIZER INC-202500234684

PATIENT
  Age: 56 Year
  Sex: Male

DRUGS (16)
  1. METHOTREXATE [Suspect]
     Active Substance: METHOTREXATE
     Indication: Non-Hodgkin^s lymphoma
     Dosage: UNK, MATRIX PROTOCOL, RECEIVED TWO CYCLES
  2. METHOTREXATE [Suspect]
     Active Substance: METHOTREXATE
     Indication: Diffuse large B-cell lymphoma
     Dosage: UNK, MATRIX PROTOCOL, RECEIVED TWO CYCLES
     Route: 065
  3. METHOTREXATE [Suspect]
     Active Substance: METHOTREXATE
     Dosage: UNK, MATRIX PROTOCOL, RECEIVED TWO CYCLES
     Route: 065
  4. METHOTREXATE [Suspect]
     Active Substance: METHOTREXATE
     Dosage: UNK, MATRIX PROTOCOL, RECEIVED TWO CYCLES
  5. CYTARABINE [Concomitant]
     Active Substance: CYTARABINE
     Indication: Non-Hodgkin^s lymphoma
     Dosage: UNK, MATRIX PROTOCOL, RECEIVED TWO CYCLES
  6. CYTARABINE [Concomitant]
     Active Substance: CYTARABINE
     Indication: Diffuse large B-cell lymphoma
     Dosage: UNK, MATRIX PROTOCOL, RECEIVED TWO CYCLES
     Route: 065
  7. CYTARABINE [Concomitant]
     Active Substance: CYTARABINE
     Dosage: UNK, MATRIX PROTOCOL, RECEIVED TWO CYCLES
     Route: 065
  8. CYTARABINE [Concomitant]
     Active Substance: CYTARABINE
     Dosage: UNK, MATRIX PROTOCOL, RECEIVED TWO CYCLES
  9. THIOTEPA [Concomitant]
     Active Substance: THIOTEPA
     Indication: Non-Hodgkin^s lymphoma
     Dosage: UNK, MATRIX PROTOCOL, RECEIVED TWO CYCLES
  10. THIOTEPA [Concomitant]
     Active Substance: THIOTEPA
     Indication: Diffuse large B-cell lymphoma
     Dosage: UNK, MATRIX PROTOCOL, RECEIVED TWO CYCLES
     Route: 065
  11. THIOTEPA [Concomitant]
     Active Substance: THIOTEPA
     Dosage: UNK, MATRIX PROTOCOL, RECEIVED TWO CYCLES
     Route: 065
  12. THIOTEPA [Concomitant]
     Active Substance: THIOTEPA
     Dosage: UNK, MATRIX PROTOCOL, RECEIVED TWO CYCLES
  13. RITUXIMAB [Concomitant]
     Active Substance: RITUXIMAB
     Indication: Non-Hodgkin^s lymphoma
     Dosage: UNK, MATRIX PROTOCOL, RECEIVED TWO CYCLES
  14. RITUXIMAB [Concomitant]
     Active Substance: RITUXIMAB
     Indication: Diffuse large B-cell lymphoma
     Dosage: UNK, MATRIX PROTOCOL, RECEIVED TWO CYCLES
     Route: 065
  15. RITUXIMAB [Concomitant]
     Active Substance: RITUXIMAB
     Dosage: UNK, MATRIX PROTOCOL, RECEIVED TWO CYCLES
     Route: 065
  16. RITUXIMAB [Concomitant]
     Active Substance: RITUXIMAB
     Dosage: UNK, MATRIX PROTOCOL, RECEIVED TWO CYCLES

REACTIONS (4)
  - Cerebellar syndrome [Unknown]
  - Acute kidney injury [Unknown]
  - Infection [Unknown]
  - Haematotoxicity [Unknown]
